FAERS Safety Report 12181786 (Version 2)
Quarter: 2016Q2

REPORT INFORMATION
  Report Type: Spontaneous
  Country: FR (occurrence: FR)
  Receive Date: 20160315
  Receipt Date: 20160613
  Transmission Date: 20160815
  Serious: Yes (Life-Threatening, Hospitalization)
  Sender: FDA-Public Use
  Company Number: FR-PFIZER INC-2016149733

PATIENT
  Age: 61 Year
  Sex: Female

DRUGS (5)
  1. ZYVOXID [Suspect]
     Active Substance: LINEZOLID
     Indication: SEPSIS
     Dosage: 600 MG, 2X/DAY
     Route: 042
     Dates: start: 20150108, end: 20150122
  2. LEVOFLOXACIN. [Concomitant]
     Active Substance: LEVOFLOXACIN
     Dosage: UNK
     Dates: start: 20150115
  3. PIPERACILLIN AND TAZOBACTAM [Concomitant]
     Active Substance: PIPERACILLIN SODIUM\TAZOBACTAM SODIUM
     Dosage: UNK
     Dates: start: 20150110, end: 20150115
  4. AMOXICILLIN SODIUM/CLAVULANATE POTASSIUM [Concomitant]
     Dosage: UNK
     Dates: start: 20150115
  5. RIFADINE /00146901/ [Concomitant]
     Active Substance: RIFAMPIN
     Dosage: UNK
     Dates: start: 20150109

REACTIONS (4)
  - Hyponatraemia [Unknown]
  - Lactic acidosis [Unknown]
  - Acute kidney injury [Unknown]
  - Blood creatinine increased [Unknown]

NARRATIVE: CASE EVENT DATE: 20150122
